FAERS Safety Report 12512263 (Version 1)
Quarter: 2016Q2

REPORT INFORMATION
  Report Type: Spontaneous
  Country: US (occurrence: None)
  Receive Date: 20160629
  Receipt Date: 20160629
  Transmission Date: 20160815
  Serious: No
  Sender: FDA-Public Use
  Company Number: None

PATIENT
  Age: 63 Year
  Sex: Female
  Weight: 64.41 kg

DRUGS (7)
  1. ZOLPIDEM TART ER [Concomitant]
  2. CYANOCOBALAMIN. [Concomitant]
     Active Substance: CYANOCOBALAMIN
  3. ATORVASTATIN [Concomitant]
     Active Substance: ATORVASTATIN
  4. LORATADINE. [Concomitant]
     Active Substance: LORATADINE
  5. TOPIRAMATE, 25 MG [Suspect]
     Active Substance: TOPIRAMATE
     Indication: MIGRAINE
     Route: 048
     Dates: start: 20160614, end: 20160625
  6. MULTI VITAMIN [Concomitant]
     Active Substance: VITAMINS
  7. NEXIUM [Concomitant]
     Active Substance: ESOMEPRAZOLE MAGNESIUM

REACTIONS (11)
  - Pain in extremity [None]
  - Therapy cessation [None]
  - Skin warm [None]
  - Confusional state [None]
  - Mood swings [None]
  - Flushing [None]
  - Hypohidrosis [None]
  - Pain [None]
  - Malaise [None]
  - Inappropriate schedule of drug administration [None]
  - No therapeutic response [None]

NARRATIVE: CASE EVENT DATE: 20160616
